FAERS Safety Report 4442331-5 (Version None)
Quarter: 2004Q3

REPORT INFORMATION
  Report Type: 
  Country: None (occurrence: None)
  Receive Date: 20040903
  Receipt Date: 20040719
  Transmission Date: 20050211
  Serious: Yes (Other)
  Sender: FDA-Public Use
  Company Number: 2004UW14928

PATIENT
  Age: 72 Year
  Sex: Female
  Weight: 62.5964 kg

DRUGS (4)
  1. CRESTOR [Suspect]
     Indication: BLOOD CHOLESTEROL
     Dosage: 10 MG DAILY PO
     Route: 048
  2. SYNTHROID [Concomitant]
  3. MENOPRIL [Concomitant]
  4. SLEEPING PILLS [Concomitant]

REACTIONS (1)
  - MEMORY IMPAIRMENT [None]
